FAERS Safety Report 18582382 (Version 1)
Quarter: 2020Q4

REPORT INFORMATION
  Report Type: Spontaneous
  Country: US (occurrence: US)
  Receive Date: 20201205
  Receipt Date: 20201205
  Transmission Date: 20210114
  Serious: Yes (Hospitalization, Other)
  Sender: FDA-Public Use
  Company Number: US-MACLEODS PHARMACEUTICALS US LTD-MAC2020029306

PATIENT

DRUGS (4)
  1. MELATONIN [Concomitant]
     Active Substance: MELATONIN
     Indication: PRODUCT USED FOR UNKNOWN INDICATION
     Dosage: 3 MILLIGRAM, QD, NIGHTLY
     Route: 065
  2. QUETIAPINE EXTENDED RELEASE TABLET [Suspect]
     Active Substance: QUETIAPINE
     Dosage: 50 MILLIGRAM, BID
     Route: 065
  3. QUETIAPINE EXTENDED RELEASE TABLET [Suspect]
     Active Substance: QUETIAPINE
     Indication: PRODUCT USED FOR UNKNOWN INDICATION
     Dosage: 200 MILLIGRAM, BID
     Route: 065
  4. LISDEXAMFETAMINE [Suspect]
     Active Substance: LISDEXAMFETAMINE
     Indication: PRODUCT USED FOR UNKNOWN INDICATION
     Dosage: 50 MILLIGRAM, QD
     Route: 065

REACTIONS (4)
  - Decreased appetite [Unknown]
  - Constipation [Unknown]
  - Product deposit [Not Recovered/Not Resolved]
  - Weight decreased [Unknown]
